FAERS Safety Report 7323305-3 (Version None)
Quarter: 2011Q1

REPORT INFORMATION
  Report Type: 
  Country: None (occurrence: None)
  Receive Date: 20110217
  Receipt Date: 20110203
  Transmission Date: 20110831
  Serious: Yes (Death)
  Sender: FDA-Public Use
  Company Number: 2011CP000021

PATIENT
  Age: 20 Month
  Sex: Male

DRUGS (21)
  1. PERFALGAN (PARACETAMOL) [Suspect]
     Dosage: 200 MG;IV
     Route: 042
     Dates: start: 20101221, end: 20101224
  2. SEVOFLURANE [Suspect]
     Dosage: INH
     Route: 055
     Dates: start: 20101223
  3. EPINEPHRINE [Suspect]
     Dosage: 200 UG;IV
     Route: 042
     Dates: start: 20101223
  4. BASILIXAIMAB (BASILIXAMAB) [Suspect]
     Indication: PROPHYLAXIS
     Dosage: 10 MG;IV
     Route: 042
     Dates: start: 20101223
  5. ATRACURIUM BESYLATE [Suspect]
     Dosage: 5 MG;IV
     Route: 042
     Dates: start: 20101223
  6. ESOMEPRAZOLE (ESOMEPRAZOLE) [Suspect]
     Dosage: 20 MG;IV
     Route: 042
     Dates: start: 20101223
  7. MORPHINE SULFATE INJ [Suspect]
     Dosage: IV
     Route: 042
     Dates: start: 20101223
  8. MIDAZOLAM HCL [Suspect]
     Indication: ANAESTHESIA
     Dosage: 5 MG;IV
     Route: 042
     Dates: start: 20101223
  9. SUFENTANIL (SUFENTANIL) [Suspect]
     Indication: ANAESTHESIA
     Dosage: 5 MG;IV
     Route: 042
     Dates: start: 20101223
  10. HEPARIN CALCIUM [Suspect]
     Dosage: SC
     Route: 058
     Dates: start: 20101223
  11. KETAMINE HCL [Suspect]
     Dosage: IV
     Route: 042
     Dates: start: 20101224
  12. METHYLPREDNISOLONE [Suspect]
     Dosage: 140 MG;IV
     Route: 042
     Dates: start: 20101223
  13. NOREPINEPHRINE BITARTRATE [Suspect]
     Dosage: 2 MG;IV
     Route: 042
     Dates: start: 20101223, end: 20101224
  14. MYCOPHENOLATE MOFETIL [Suspect]
     Dosage: 280 MG;IV
     Route: 042
     Dates: start: 20101223, end: 20101224
  15. METRONIDAZOLE [Suspect]
     Dosage: IV
     Route: 042
     Dates: start: 20101224
  16. ATROPINE [Suspect]
     Dosage: 200 UG;IV
     Route: 042
     Dates: start: 20101223
  17. BACTRIM [Suspect]
     Dosage: IV
     Route: 042
     Dates: start: 20101223
  18. CHORIONIC GONADOTROPIN [Suspect]
     Dosage: IV
     Route: 042
     Dates: start: 20101224
  19. FUROSEMIDE [Suspect]
     Dosage: 10 MG;IV
     Route: 042
     Dates: start: 20101223
  20. ALBUTEROL SULFATE [Suspect]
     Dates: start: 20101223
  21. ALBUMIN (HUMAN) [Suspect]
     Dosage: IV
     Route: 042
     Dates: start: 20101223, end: 20101224

REACTIONS (13)
  - SPLENOMEGALY [None]
  - CARDIAC FAILURE [None]
  - HYPERTHERMIA [None]
  - TACHYPNOEA [None]
  - OXYGEN SATURATION DECREASED [None]
  - AGITATION [None]
  - HAEMOGLOBIN DECREASED [None]
  - RESPIRATORY FAILURE [None]
  - GASTROINTESTINAL HAEMORRHAGE [None]
  - PALLOR [None]
  - ACUTE PULMONARY OEDEMA [None]
  - BRADYCARDIA [None]
  - PLEURAL EFFUSION [None]
